FAERS Safety Report 19961648 (Version 1)
Quarter: 2021Q4

REPORT INFORMATION
  Report Type: Spontaneous
  Country: CN (occurrence: CN)
  Receive Date: 20211018
  Receipt Date: 20211018
  Transmission Date: 20220303
  Serious: Yes (Other)
  Sender: FDA-Public Use
  Company Number: CN-BAXTER-2021BAX024736

PATIENT
  Age: 51 Year
  Sex: Female
  Weight: 60 kg

DRUGS (10)
  1. CYCLOPHOSPHAMIDE [Suspect]
     Active Substance: CYCLOPHOSPHAMIDE
     Indication: Invasive ductal breast carcinoma
     Dosage: CYCLOPHOSPHAMIDE 1GRAM + SODIUM CHLORIDE 50ML,FIRST-SEVEN CYCLES, DAY 1
     Route: 042
     Dates: start: 20181002, end: 20190219
  2. CYCLOPHOSPHAMIDE [Suspect]
     Active Substance: CYCLOPHOSPHAMIDE
     Dosage: DOSE REINTRODUCED, CYCLOPHOSPHAMIDE+ SODIUM CHLORIDE
     Route: 042
  3. SODIUM CHLORIDE [Suspect]
     Active Substance: SODIUM CHLORIDE
     Indication: Medication dilution
     Dosage: CYCLOPHOSPHAMIDE 1GRAM + SODIUM CHLORIDE 50ML, FIRST-SEVENTH CYCLES, DAY 1
     Route: 042
     Dates: start: 20181002, end: 20190219
  4. SODIUM CHLORIDE [Suspect]
     Active Substance: SODIUM CHLORIDE
     Dosage: AISU (DOCETAXEL INJECTION) + SODIUM CHLORIDE 100ML
     Route: 041
     Dates: start: 20181023, end: 20190313
  5. SODIUM CHLORIDE [Suspect]
     Active Substance: SODIUM CHLORIDE
     Dosage: DOSE REINTRODUCED, CYCLOPHOSPHAMIDE + SODIUM CHLORIDE INJECTION
     Route: 042
  6. SODIUM CHLORIDE [Suspect]
     Active Substance: SODIUM CHLORIDE
     Dosage: DOSE REINTRODUCED, AISU+ SODIUM CHLORIDE
     Route: 041
  7. DOCETAXEL [Suspect]
     Active Substance: DOCETAXEL
     Indication: Invasive ductal breast carcinoma
     Dosage: AISU (DOCETAXEL) 120MG + SODIUM CHLORIDE 100ML, DAY1 Q3W, 4 TIMES, FIRST- EIGHT CYCLES
     Route: 041
     Dates: start: 20181023, end: 20190313
  8. DOCETAXEL [Suspect]
     Active Substance: DOCETAXEL
     Dosage: DOSE REINTRODUCED, AISU + SODIUM CHLORIDE
     Route: 041
  9. EPIRUBICIN HYDROCHLORIDE [Suspect]
     Active Substance: EPIRUBICIN HYDROCHLORIDE
     Indication: Invasive ductal breast carcinoma
     Dosage: DAY 1, FIRST-SEVENTH CYCLES
     Route: 042
     Dates: start: 20181002, end: 20190219
  10. EPIRUBICIN HYDROCHLORIDE [Suspect]
     Active Substance: EPIRUBICIN HYDROCHLORIDE
     Dosage: DOSE REINTRODUCED
     Route: 042

REACTIONS (2)
  - Electrocardiogram abnormal [Not Recovered/Not Resolved]
  - Heart valve incompetence [Not Recovered/Not Resolved]

NARRATIVE: CASE EVENT DATE: 20190314
